FAERS Safety Report 5211618-0 (Version None)
Quarter: 2007Q1

REPORT INFORMATION
  Report Type: 
  Country: None (occurrence: None)
  Receive Date: 20070118
  Receipt Date: 20070109
  Transmission Date: 20070707
  Serious: Yes (Other)
  Sender: FDA-Public Use
  Company Number: PHNR2007AU00457

PATIENT
  Age: 65 Year
  Sex: Female

DRUGS (2)
  1. LAMISIL [Suspect]
     Indication: FUNGAL SKIN INFECTION
     Dosage: 250 MG DAILY
     Route: 048
     Dates: start: 20050728, end: 20050902
  2. NARDIL /CAN/ [Concomitant]
     Indication: DEPRESSION
     Dosage: 15MG

REACTIONS (2)
  - BURNING SENSATION [None]
  - PAIN IN EXTREMITY [None]
